FAERS Safety Report 12199784 (Version 1)
Quarter: 2016Q1

REPORT INFORMATION
  Report Type: Spontaneous
  Country: US (occurrence: None)
  Receive Date: 20160321
  Receipt Date: 20160321
  Transmission Date: 20160526
  Serious: Yes (Hospitalization)
  Sender: FDA-Public Use
  Company Number: None

PATIENT
  Age: 57 Year
  Sex: Male
  Weight: 82.7 kg

DRUGS (8)
  1. AMILORIDE [Concomitant]
     Active Substance: AMILORIDE
  2. MULTIVITAMIN [Concomitant]
     Active Substance: VITAMINS
  3. HARVONI [Suspect]
     Active Substance: LEDIPASVIR\SOFOSBUVIR
     Indication: HEPATITIS C
     Dosage: 90/400 DF DAILY ORAL
     Route: 048
     Dates: start: 20150619, end: 20151204
  4. OMEPRAZOLE. [Concomitant]
     Active Substance: OMEPRAZOLE
  5. CIPRO [Concomitant]
     Active Substance: CIPROFLOXACIN HYDROCHLORIDE
  6. CYCLOBENZAPRINE [Concomitant]
     Active Substance: CYCLOBENZAPRINE
  7. FUROSEMIDE. [Concomitant]
     Active Substance: FUROSEMIDE
  8. KENALOG [Concomitant]
     Active Substance: TRIAMCINOLONE ACETONIDE

REACTIONS (1)
  - Gastrointestinal haemorrhage [None]
